FAERS Safety Report 8029774-8 (Version None)
Quarter: 2012Q1

REPORT INFORMATION
  Report Type: 
  Country: None (occurrence: None)
  Receive Date: 20120109
  Receipt Date: 20111230
  Transmission Date: 20120608
  Serious: Yes (Hospitalization)
  Sender: FDA-Public Use
  Company Number: US-BAYER-2012-001272

PATIENT
  Age: 19 Year
  Sex: Female

DRUGS (7)
  1. ZITHROMAX [Concomitant]
  2. ZOLOFT [Concomitant]
     Dosage: 100 MG, UNK
     Route: 048
  3. YAZ [Suspect]
  4. LAMICTAL [Concomitant]
     Dosage: 200 MG, UNK
     Route: 048
  5. PREDNISONE TAB [Concomitant]
     Dosage: 20 MG, UNK
     Route: 048
  6. NUVIGIL [Concomitant]
     Dosage: 150 MG, UNK
     Route: 048
  7. ABILIFY [Concomitant]
     Dosage: 30 MG, UNK
     Route: 048

REACTIONS (1)
  - PULMONARY EMBOLISM [None]
